FAERS Safety Report 7675774-7 (Version None)
Quarter: 2011Q3

REPORT INFORMATION
  Report Type: 
  Country: None (occurrence: None)
  Receive Date: 20110810
  Receipt Date: 20110802
  Transmission Date: 20111222
  Serious: Yes (Hospitalization, Other)
  Sender: FDA-Public Use
  Company Number: US-RB-025989-11

PATIENT
  Sex: Female
  Weight: 1 kg

DRUGS (2)
  1. SUBUTEX [Suspect]
     Indication: PRODUCT USED FOR UNKNOWN INDICATION
     Dosage: DOSAGE INFORMATION UNKNOWN
     Route: 064
     Dates: end: 20090101
  2. SUBUTEX [Suspect]
     Dosage: DOSAGE INFORMATION UNKNOWN
     Route: 063
     Dates: start: 20090101, end: 20100101

REACTIONS (5)
  - WEIGHT DECREASED [None]
  - DRUG WITHDRAWAL SYNDROME NEONATAL [None]
  - PREMATURE BABY [None]
  - EXPOSURE DURING BREAST FEEDING [None]
  - MATERNAL EXPOSURE DURING PREGNANCY [None]
